FAERS Safety Report 8513082-2 (Version None)
Quarter: 2012Q3

REPORT INFORMATION
  Report Type: 
  Country: None (occurrence: None)
  Receive Date: 20120716
  Receipt Date: 20120618
  Transmission Date: 20120928
  Serious: No
  Sender: FDA-Public Use
  Company Number: US-009507513-2012SP030646

PATIENT
  Sex: Male

DRUGS (3)
  1. ANTIVIRAL (UNSPECIFIED) [Concomitant]
     Indication: PRODUCT USED FOR UNKNOWN INDICATION
  2. MK-8908 [Suspect]
     Indication: PRODUCT USED FOR UNKNOWN INDICATION
  3. PEG-INTRON [Suspect]
     Indication: HEPATITIS
     Dosage: 120 A?G, QW
     Dates: start: 20120217

REACTIONS (8)
  - HYPERSOMNIA [None]
  - INCREASED TENDENCY TO BRUISE [None]
  - HEADACHE [None]
  - DIARRHOEA [None]
  - RASH [None]
  - PLATELET COUNT DECREASED [None]
  - FATIGUE [None]
  - INJECTION SITE ERYTHEMA [None]
